FAERS Safety Report 7305876-6 (Version None)
Quarter: 2011Q1

REPORT INFORMATION
  Report Type: 
  Country: None (occurrence: None)
  Receive Date: 20110222
  Receipt Date: 20110211
  Transmission Date: 20110831
  Serious: Yes (Other)
  Sender: FDA-Public Use
  Company Number: CA-BRISTOL-MYERS SQUIBB COMPANY-15056468

PATIENT
  Age: 33 Year
  Sex: Female

DRUGS (18)
  1. ORENCIA [Suspect]
     Indication: RHEUMATOID ARTHRITIS
     Dosage: LAST DOSE ON 07-APR-2010;5MAY10(1000 MG),18JAN11 INF-14
     Route: 042
     Dates: start: 20100212
  2. ADVAIR [Concomitant]
  3. ASCORBIC ACID [Concomitant]
  4. CELEBREX [Concomitant]
  5. PARIET [Concomitant]
  6. AVIANE-28 [Concomitant]
  7. CALCIUM [Concomitant]
  8. TYLENOL W/ CODEINE NO. 3 [Concomitant]
  9. FOLIC ACID [Concomitant]
  10. FOSAMAX [Concomitant]
  11. NORTRIPTYLINE [Concomitant]
  12. ZINC [Concomitant]
  13. METFORMIN [Concomitant]
  14. IRON [Concomitant]
  15. VITAMIN B-12 [Concomitant]
     Dosage: INJECTION
  16. VENTOLIN [Concomitant]
  17. METHOTREXATE [Concomitant]
  18. NASONEX [Concomitant]

REACTIONS (3)
  - PNEUMONIA [None]
  - ASTHMA [None]
  - LOWER RESPIRATORY TRACT INFECTION [None]
